FAERS Safety Report 22604891 (Version 2)
Quarter: 2023Q2

REPORT INFORMATION
  Report Type: Report from Study
  Country: MX (occurrence: MX)
  Receive Date: 20230615
  Receipt Date: 20230628
  Transmission Date: 20230721
  Serious: Yes (Hospitalization)
  Sender: FDA-Public Use
  Company Number: MX-002147023-NVSC2023MX135674

PATIENT
  Sex: Female

DRUGS (1)
  1. TASIGNA [Suspect]
     Active Substance: NILOTINIB
     Indication: Chronic myeloid leukaemia
     Dosage: UNK (2 CAPSULES IN THE MORNING AND 1 IN THE AFTERNOON)
     Route: 048

REACTIONS (3)
  - Oxygen saturation abnormal [Unknown]
  - Pulmonary oedema [Recovering/Resolving]
  - Anxiety [Unknown]
